FAERS Safety Report 4999819-8 (Version None)
Quarter: 2006Q2

REPORT INFORMATION
  Report Type: 
  Country: None (occurrence: None)
  Receive Date: 20060511
  Receipt Date: 20060503
  Transmission Date: 20061013
  Serious: Yes (Death)
  Sender: FDA-Public Use
  Company Number: FR-SANOFI-SYNTHELABO-A02200601159

PATIENT
  Age: 73 Year
  Sex: Male

DRUGS (3)
  1. STILNOX [Suspect]
     Indication: INSOMNIA
     Dosage: 50 MG TO 70 MG DAILY
     Route: 048
  2. STILNOX [Suspect]
     Indication: DRUG ABUSER
     Dosage: 50 MG TO 70 MG DAILY
     Route: 048
  3. ATHYMIL [Concomitant]
     Indication: DEPRESSION
     Route: 048

REACTIONS (2)
  - DRUG ABUSER [None]
  - HEPATIC NEOPLASM MALIGNANT [None]
